FAERS Safety Report 6830054-4 (Version None)
Quarter: 2010Q3

REPORT INFORMATION
  Report Type: 
  Country: None (occurrence: None)
  Receive Date: 20100711
  Receipt Date: 20100503
  Transmission Date: 20110219
  Serious: No
  Sender: FDA-Public Use
  Company Number: US-ALLERGAN-1005835US

PATIENT
  Age: 58 Year

DRUGS (4)
  1. LATISSE [Suspect]
     Indication: GROWTH OF EYELASHES
     Dosage: UNK
     Route: 061
     Dates: start: 20100201
  2. METHOTREXATE [Concomitant]
     Indication: ARTHRITIS
     Dosage: UNK
  3. FOLATE [Concomitant]
     Dosage: UNK
  4. HYDROXYCHLOROQUINE [Concomitant]
     Dosage: UNK

REACTIONS (4)
  - EYELID PAIN [None]
  - MADAROSIS [None]
  - SKIN HYPERPIGMENTATION [None]
  - WRONG TECHNIQUE IN DRUG USAGE PROCESS [None]
